FAERS Safety Report 8227324-4 (Version None)
Quarter: 2012Q1

REPORT INFORMATION
  Report Type: 
  Country: None (occurrence: None)
  Receive Date: 20120322
  Receipt Date: 20120319
  Transmission Date: 20120608
  Serious: Yes (Life-Threatening, Other)
  Sender: FDA-Public Use
  Company Number: PHHY2012BR010461

PATIENT
  Sex: Female

DRUGS (2)
  1. PROPRANOLOL [Concomitant]
  2. SANDOSTATIN LAR [Suspect]
     Indication: ACROMEGALY
     Dosage: 20 MG EVERY SIX WEEKS
     Route: 030
     Dates: start: 20010101

REACTIONS (5)
  - MEMORY IMPAIRMENT [None]
  - COMA [None]
  - DIZZINESS [None]
  - MENINGITIS [None]
  - MULTIPLE MYELOMA [None]
